FAERS Safety Report 18610740 (Version 3)
Quarter: 2021Q2

REPORT INFORMATION
  Report Type: Spontaneous
  Country: US (occurrence: US)
  Receive Date: 20201214
  Receipt Date: 20210623
  Transmission Date: 20210717
  Serious: Yes (Other)
  Sender: FDA-Public Use
  Company Number: US-PFIZER INC-2020490607

PATIENT
  Age: 54 Year
  Sex: Female

DRUGS (1)
  1. XELJANZ XR [Suspect]
     Active Substance: TOFACITINIB CITRATE
     Indication: RHEUMATOID ARTHRITIS
     Dosage: 11 MG, DAILY
     Route: 048
     Dates: start: 2020

REACTIONS (10)
  - Pain [Unknown]
  - Inflammation [Unknown]
  - Arthritis [Unknown]
  - Urinary tract infection [Unknown]
  - Finger deformity [Unknown]
  - Diarrhoea [Unknown]
  - Kidney infection [Unknown]
  - Diabetic ulcer [Unknown]
  - Back pain [Unknown]
  - Musculoskeletal stiffness [Unknown]
